FAERS Safety Report 18329935 (Version 1)
Quarter: 2020Q3

REPORT INFORMATION
  Report Type: Spontaneous
  Country: US (occurrence: US)
  Receive Date: 20200930
  Receipt Date: 20200930
  Transmission Date: 20201103
  Serious: Yes (Death)
  Sender: FDA-Public Use
  Company Number: None

PATIENT
  Age: 71 Year
  Sex: Female
  Weight: 134 kg

DRUGS (3)
  1. ENOXAPARIN [Suspect]
     Active Substance: ENOXAPARIN
     Indication: THROMBOSIS PROPHYLAXIS
     Route: 058
     Dates: start: 20200815, end: 20200820
  2. CARAFATE 1 GRAM QID [Concomitant]
     Dates: start: 20200802
  3. PROTONIX 40MG DAILY [Concomitant]
     Dates: start: 20200802

REACTIONS (2)
  - Haematoma [None]
  - Blood pressure systolic decreased [None]

NARRATIVE: CASE EVENT DATE: 20200821
